FAERS Safety Report 25307344 (Version 1)
Quarter: 2025Q2

REPORT INFORMATION
  Report Type: Spontaneous
  Country: US (occurrence: US)
  Receive Date: 20250513
  Receipt Date: 20250513
  Transmission Date: 20250717
  Serious: Yes (Life-Threatening, Congenital Anomaly, Other)
  Sender: FRESENIUS KABI
  Company Number: US-FreseniusKabi-FK202505839

PATIENT
  Age: 53 Year
  Sex: Female
  Weight: 78.3 kg

DRUGS (1)
  1. PROTAMINE SULFATE [Suspect]
     Active Substance: PROTAMINE SULFATE
     Indication: Procoagulant therapy
     Dates: start: 20250415

REACTIONS (2)
  - Cardiac arrest [Recovering/Resolving]
  - Hypotension [Recovered/Resolved]

NARRATIVE: CASE EVENT DATE: 20250415
